FAERS Safety Report 16944940 (Version 1)
Quarter: 2019Q4

REPORT INFORMATION
  Report Type: Spontaneous
  Country: CA (occurrence: CA)
  Receive Date: 20191022
  Receipt Date: 20191022
  Transmission Date: 20200122
  Serious: Yes (Other)
  Sender: FDA-Public Use
  Company Number: CA-PFIZER INC-2019453243

PATIENT
  Sex: Male

DRUGS (1)
  1. DIAZEPAM. [Suspect]
     Active Substance: DIAZEPAM
     Dosage: UNK
     Route: 051

REACTIONS (3)
  - Amnesia [Not Recovered/Not Resolved]
  - Abnormal dreams [Not Recovered/Not Resolved]
  - Hallucination [Not Recovered/Not Resolved]
